FAERS Safety Report 9192279 (Version 2)
Quarter: 2013Q2

REPORT INFORMATION
  Report Type: Spontaneous
  Country: FR (occurrence: FR)
  Receive Date: 20130327
  Receipt Date: 20130506
  Transmission Date: 20140414
  Serious: No
  Sender: FDA-Public Use
  Company Number: FR-JNJFOC-20130309165

PATIENT
  Sex: Male

DRUGS (3)
  1. DUROGESIC [Suspect]
     Indication: BACK PAIN
     Route: 062
  2. DUROGESIC [Suspect]
     Indication: BACK PAIN
     Route: 062
  3. OXYCONTIN [Concomitant]
     Indication: PRODUCT USED FOR UNKNOWN INDICATION
     Route: 065

REACTIONS (2)
  - Off label use [Recovered/Resolved]
  - Drug prescribing error [Recovered/Resolved]
